FAERS Safety Report 5774872-2 (Version None)
Quarter: 2008Q2

REPORT INFORMATION
  Report Type: 
  Country: None (occurrence: None)
  Receive Date: 20080617
  Receipt Date: 20080604
  Transmission Date: 20081010
  Serious: Yes (Other)
  Sender: FDA-Public Use
  Company Number: JP-ELI_LILLY_AND_COMPANY-JP200806001383

PATIENT
  Age: 80 Year
  Sex: Male

DRUGS (1)
  1. GEMZAR [Suspect]
     Indication: BILE DUCT CANCER
     Route: 042

REACTIONS (3)
  - ASCITES [None]
  - CAPILLARY LEAK SYNDROME [None]
  - HYPOALBUMINAEMIA [None]
